FAERS Safety Report 8063662-6 (Version None)
Quarter: 2012Q1

REPORT INFORMATION
  Report Type: 
  Country: None (occurrence: None)
  Receive Date: 20120123
  Receipt Date: 20120112
  Transmission Date: 20120608
  Serious: Yes (Other)
  Sender: FDA-Public Use
  Company Number: MY-ASTRAZENECA-2012SE02354

PATIENT
  Age: 29 Year
  Sex: Male
  Weight: 68 kg

DRUGS (2)
  1. QUETIAPINE [Suspect]
     Indication: AFFECTIVE DISORDER
     Route: 048
  2. QUETIAPINE [Suspect]
     Indication: BIPOLAR DISORDER
     Route: 048

REACTIONS (2)
  - DYSLIPIDAEMIA [None]
  - RETINAL VEIN OCCLUSION [None]
